FAERS Safety Report 13661243 (Version 1)
Quarter: 2017Q2

REPORT INFORMATION
  Report Type: Report from Study
  Country: US (occurrence: US)
  Receive Date: 20170616
  Receipt Date: 20170616
  Transmission Date: 20170830
  Serious: No
  Sender: FDA-Public Use
  Company Number: US-US WORLDMEDS, LLC-USW201701-000151

PATIENT
  Age: 74 Year
  Sex: Male

DRUGS (9)
  1. APOKYN [Suspect]
     Active Substance: APOMORPHINE HYDROCHLORIDE
     Indication: PARKINSON^S DISEASE
     Route: 058
     Dates: start: 20170124
  2. PEPCID [Concomitant]
     Active Substance: FAMOTIDINE
  3. OSCAL [Concomitant]
     Active Substance: CALCIUM CARBONATE
  4. GAPABENTIN [Concomitant]
  5. EXELON [Concomitant]
     Active Substance: RIVASTIGMINE TARTRATE
  6. RYTARY [Concomitant]
     Active Substance: CARBIDOPA\LEVODOPA
     Route: 048
  7. VITAMIN D [Concomitant]
     Active Substance: CHOLECALCIFEROL
  8. COGENTIN [Concomitant]
     Active Substance: BENZTROPINE MESYLATE
  9. PATADAY [Concomitant]
     Active Substance: OLOPATADINE HYDROCHLORIDE
     Route: 047

REACTIONS (3)
  - Fall [Unknown]
  - Erythema [Recovered/Resolved]
  - Blood pressure decreased [Recovered/Resolved]

NARRATIVE: CASE EVENT DATE: 20170125
